FAERS Safety Report 25130527 (Version 1)
Quarter: 2025Q1

REPORT INFORMATION
  Report Type: Spontaneous
  Country: US (occurrence: None)
  Receive Date: 20250326
  Receipt Date: 20250326
  Transmission Date: 20250409
  Serious: Yes (Death)
  Sender: FDA-CTU
  Company Number: None

PATIENT
  Age: 65 Year
  Sex: Male

DRUGS (1)
  1. OJJAARA [Suspect]
     Active Substance: MOMELOTINIB DIHYDROCHLORIDE MONOHYDRATE
     Indication: Paroxysmal nocturnal haemoglobinuria
     Dosage: 200 MG DAILY ORAL
     Route: 048
     Dates: end: 20250305

REACTIONS (1)
  - Death [None]

NARRATIVE: CASE EVENT DATE: 20250305
